FAERS Safety Report 18743359 (Version 1)
Quarter: 2021Q1

REPORT INFORMATION
  Report Type: Spontaneous
  Country: FR (occurrence: FR)
  Receive Date: 20210115
  Receipt Date: 20210115
  Transmission Date: 20210419
  Serious: Yes (Hospitalization)
  Sender: FDA-Public Use
  Company Number: FR-ROCHE-2749818

PATIENT
  Age: 75 Year
  Sex: Male
  Weight: 60 kg

DRUGS (9)
  1. NOVORAPID [Concomitant]
     Active Substance: INSULIN ASPART
     Dosage: NON RENSEIGNEE
     Route: 058
  2. COLCHICINE. [Concomitant]
     Active Substance: COLCHICINE
     Route: 048
     Dates: start: 20200906
  3. ACIDE ALENDRONIQUE [Concomitant]
     Active Substance: ALENDRONIC ACID
     Route: 048
  4. KARDEGIC [Concomitant]
     Active Substance: ASPIRIN DL-LYSINE
     Route: 048
     Dates: end: 20200906
  5. AMLODIPINE [Concomitant]
     Active Substance: AMLODIPINE BESYLATE
     Route: 048
  6. PERINDOPRIL [Concomitant]
     Active Substance: PERINDOPRIL
     Route: 048
  7. RITUXIMAB. [Suspect]
     Active Substance: RITUXIMAB
     Indication: RHEUMATOID ARTHRITIS
     Dosage: DATE OF MOST RECENT DOSE OF RITUXIMAB PRIOR TO THE EVENT: 17/JUL/2020
     Route: 042
     Dates: start: 20200702
  8. COLECALCIFEROL [Concomitant]
     Active Substance: CHOLECALCIFEROL
     Route: 048
  9. ROSUVASTATINE [Concomitant]
     Active Substance: ROSUVASTATIN
     Route: 048

REACTIONS (1)
  - Enterocolitis haemorrhagic [Recovered/Resolved]

NARRATIVE: CASE EVENT DATE: 20200910
